FAERS Safety Report 25290094 (Version 1)
Quarter: 2025Q2

REPORT INFORMATION
  Report Type: Report from Study
  Country: US (occurrence: US)
  Receive Date: 20250510
  Receipt Date: 20250510
  Transmission Date: 20250717
  Serious: Yes (Hospitalization, Other)
  Sender: ACADIA PHARMACEUTICALS
  Company Number: US-ACADIA PHARMACEUTICALS INC.-ACA-2025-PIM-005380

PATIENT
  Age: 79 Year
  Sex: Female

DRUGS (9)
  1. NUPLAZID [Suspect]
     Active Substance: PIMAVANSERIN TARTRATE
     Indication: Hallucination
     Dosage: 34 MILLIGRAM, QD
     Route: 048
     Dates: start: 20250311, end: 20250501
  2. ATORVASTATIN [Concomitant]
     Active Substance: ATORVASTATIN
  3. QUETIAPINE [Concomitant]
     Active Substance: QUETIAPINE
  4. AMLODIPINE [Concomitant]
     Active Substance: AMLODIPINE BESYLATE
  5. TYLENOL [Concomitant]
     Active Substance: ACETAMINOPHEN
  6. NAPROXEN [Concomitant]
     Active Substance: NAPROXEN
  7. POTASSIUM [Concomitant]
     Active Substance: POTASSIUM
  8. MAGNESIUM [Concomitant]
     Active Substance: MAGNESIUM
  9. VENOFER [Concomitant]
     Active Substance: IRON SUCROSE

REACTIONS (6)
  - Aortic aneurysm [Unknown]
  - Thrombosis [Unknown]
  - Urethral cancer [Unknown]
  - Hepatic cancer [Unknown]
  - Thyroid cancer [Unknown]
  - Disorientation [Unknown]

NARRATIVE: CASE EVENT DATE: 20250328
